FAERS Safety Report 21123637 (Version 6)
Quarter: 2023Q1

REPORT INFORMATION
  Report Type: Spontaneous
  Country: US (occurrence: US)
  Receive Date: 20220725
  Receipt Date: 20230109
  Transmission Date: 20230418
  Serious: Yes (Other)
  Sender: FDA-Public Use
  Company Number: US-BRISTOL-MYERS SQUIBB COMPANY-2022-076519

PATIENT
  Age: 81 Year
  Sex: Male

DRUGS (38)
  1. POMALYST [Suspect]
     Active Substance: POMALIDOMIDE
     Indication: Plasma cell myeloma
     Dosage: DAILY FOR 21 DAYS AND 7 DAYS OFF
     Route: 048
     Dates: start: 201906
  2. POMALYST [Suspect]
     Active Substance: POMALIDOMIDE
     Route: 048
     Dates: start: 201909
  3. POMALYST [Suspect]
     Active Substance: POMALIDOMIDE
     Route: 048
     Dates: start: 202002
  4. POMALYST [Suspect]
     Active Substance: POMALIDOMIDE
     Dosage: 4 MG, DAILY
     Route: 048
  5. NINLARO [Suspect]
     Active Substance: IXAZOMIB CITRATE
     Indication: Plasma cell myeloma
     Dosage: TAKE 1 CAPSULE BY MOUTH ONCE ON DAYS 1, E, AND 15 OF A28DAY CYCLE ON AN EMPTY STOMACH 1 HOUR BEFORE
     Route: 048
     Dates: start: 201810
  6. DEXAMETHASONE [Concomitant]
     Active Substance: DEXAMETHASONE
     Indication: Product used for unknown indication
     Dates: start: 201802
  7. ALBUTEROL [Concomitant]
     Active Substance: ALBUTEROL
     Indication: Cough
     Dosage: 108 (90 BASE) ?MCG/ACT. INHALE 2 PUFFS BY MOUTH EVERY 4 TO 6 HOURS AS NEEDED FOR WHEEZING, SHORTNESS
  8. BENAZEPRIL [Concomitant]
     Active Substance: BENAZEPRIL HYDROCHLORIDE
     Indication: Essential hypertension
     Dosage: DAILY
     Route: 048
  9. BENAZEPRIL [Concomitant]
     Active Substance: BENAZEPRIL HYDROCHLORIDE
     Indication: Blood pressure measurement
  10. CALCIUM\VITAMIN D [Concomitant]
     Active Substance: CALCIUM\VITAMIN D
     Indication: Plasma cell myeloma
     Route: 048
  11. CYANOCOBALAMIN [Concomitant]
     Active Substance: CYANOCOBALAMIN
     Indication: Plasma cell myeloma
     Dosage: DAILY
  12. DEXAMETHASONE [Concomitant]
     Active Substance: DEXAMETHASONE
     Indication: Plasma cell myeloma
     Dosage: TAKES FIVE TABS BY MOUTH ONCE WEEKLY
  13. DEXAMETHASONE [Concomitant]
     Active Substance: DEXAMETHASONE
     Indication: Bone marrow transplant
  14. LOPERAMIDE HYDROCHLORIDE [Concomitant]
     Active Substance: LOPERAMIDE HYDROCHLORIDE
     Indication: Diarrhoea
     Dosage: 2.5 MG OR 0.025 MG FOUR TIMES DAILY UNTIL CONTROL ACHIEVED. THEN REDUCE DOSE AS NEEDED.
  15. DONEPEZIL [Concomitant]
     Active Substance: DONEPEZIL
     Indication: Amnesia
     Dosage: TAKE ONE TAB BY MOUTH DAILY AT BED TIME
  16. ERYTHROMYCIN [Concomitant]
     Active Substance: ERYTHROMYCIN
     Indication: Dry eye
     Dosage: OINTMENT?APPLY ONE HALF INTO BOTH EYES DAILY AT BED TIME. APPLY RIBBON THIN TO EYELID MARGINS AT BED
  17. ERYTHROMYCIN [Concomitant]
     Active Substance: ERYTHROMYCIN
     Indication: Exophthalmos
  18. EZETIMIBE [Concomitant]
     Active Substance: EZETIMIBE
     Indication: Hyperlipidaemia
     Dosage: ONE TAB BY MOUTH DAILY
     Route: 048
  19. FLUTICASONE [Concomitant]
     Active Substance: FLUTICASONE
     Indication: Product used for unknown indication
     Dosage: 1 SPRAY INTO EACH NOSTRIL TWICE A DAY
  20. GARLIC [Concomitant]
     Active Substance: GARLIC
     Indication: Plasma cell myeloma
     Route: 048
  21. HYDROCODONE [Concomitant]
     Active Substance: HYDROCODONE
     Indication: Sciatica
     Dosage: 5 MG?1 TAB BY MOUTH EVERY 8 HOURS AS NEEDED
     Route: 048
  22. ACETAMINOPHEN [Concomitant]
     Active Substance: ACETAMINOPHEN
     Indication: Sciatica
     Dosage: 1 TAB BY MOUTH EVERY 8 HOURS AS NEEDED
     Route: 048
  23. ANUSOL-HC [HYDROCORTISONE ACETATE] [Concomitant]
     Indication: Haemorrhoids
     Dosage: SUSPENSION?UNWRAP AND INSERT ONE SUPPOSITORY RECTALLY TWICE DAILY AS NEEDED
     Route: 054
  24. ATROVENT [Concomitant]
     Active Substance: IPRATROPIUM BROMIDE
     Indication: Vasomotor rhinitis
     Dosage: 0.06 % SOLUTION?ADMINISTER 2 SPRAYS TO NOSTRIL 4 TIMES DAILY
  25. IMODIUM A-D [Concomitant]
     Active Substance: LOPERAMIDE HYDROCHLORIDE
     Indication: Vomiting
     Dosage: 1 EVERY 8 TO 12 HOURS FOR PERSISTANT WATERY DIARRHOEA
  26. IMODIUM A-D [Concomitant]
     Active Substance: LOPERAMIDE HYDROCHLORIDE
     Indication: Diarrhoea
  27. IMODIUM A-D [Concomitant]
     Active Substance: LOPERAMIDE HYDROCHLORIDE
     Indication: COVID-19
  28. PRILOSEC [Concomitant]
     Active Substance: OMEPRAZOLE MAGNESIUM
     Indication: Gastrooesophageal reflux disease
     Route: 048
  29. ZOFRAN [Concomitant]
     Active Substance: ONDANSETRON HYDROCHLORIDE
     Indication: Vomiting
     Dosage: DISPERSIBLE?PLACE ONE TAB ON TONGUE AND LET DISSOLVE EVERY 8 HOURS AS NEEDED FOR NAUSEA
  30. ZOFRAN [Concomitant]
     Active Substance: ONDANSETRON HYDROCHLORIDE
     Indication: Diarrhoea
  31. ZOFRAN [Concomitant]
     Active Substance: ONDANSETRON HYDROCHLORIDE
     Indication: COVID-19
  32. CVS PURELAX [Concomitant]
     Indication: Constipation
     Dosage: 17GM/SCOOP POWDER
  33. COMPAZINE [Concomitant]
     Active Substance: PROCHLORPERAZINE MALEATE
     Indication: Plasma cell myeloma
     Dosage: 1 TABLET BY MOUTH EVERY 6 HOURS AS NEEDED
  34. VALTREX [Concomitant]
     Active Substance: VALACYCLOVIR HYDROCHLORIDE
     Indication: Plasma cell myeloma
     Dosage: TAKE ONE TAB BY MOUTH TWICE DAILY START AFTER COMPLETING TREATMENT DOSE OF 1 GRAM 3 TIMES A DAY
     Route: 048
  35. VALTREX [Concomitant]
     Active Substance: VALACYCLOVIR HYDROCHLORIDE
     Indication: Bone marrow transplant
  36. VALTREX [Concomitant]
     Active Substance: VALACYCLOVIR HYDROCHLORIDE
     Indication: Herpes zoster
  37. INFLUENZA VIRUS VACCINE [Concomitant]
     Active Substance: INFLUENZA VIRUS VACCINE
     Indication: Product used for unknown indication
     Dates: start: 20220605
  38. MODERNA COVID-19 VACCINE [Concomitant]
     Active Substance: ELASOMERAN
     Indication: Product used for unknown indication
     Dates: start: 20220408

REACTIONS (4)
  - Neuropathy peripheral [Not Recovered/Not Resolved]
  - Peripheral swelling [Unknown]
  - Joint swelling [Unknown]
  - Plasma cell myeloma [Unknown]

NARRATIVE: CASE EVENT DATE: 20190930
